FAERS Safety Report 23281308 (Version 1)
Quarter: 2023Q4

REPORT INFORMATION
  Report Type: Report from Study
  Country: CO (occurrence: CO)
  Receive Date: 20231211
  Receipt Date: 20231211
  Transmission Date: 20240109
  Serious: Yes (Other)
  Sender: FDA-Public Use
  Company Number: CO-ZAMBON-202304812COR

PATIENT
  Age: 90 Year
  Sex: Female

DRUGS (2)
  1. XADAGO [Suspect]
     Active Substance: SAFINAMIDE MESYLATE
     Indication: Parkinson^s disease
     Route: 048
     Dates: start: 20200131, end: 20200213
  2. XADAGO [Suspect]
     Active Substance: SAFINAMIDE MESYLATE
     Route: 048
     Dates: start: 20200214, end: 20231002

REACTIONS (1)
  - Parkinson^s disease [Recovered/Resolved]

NARRATIVE: CASE EVENT DATE: 20230902
